FAERS Safety Report 12440748 (Version 1)
Quarter: 2016Q2

REPORT INFORMATION
  Report Type: Spontaneous
  Country: JP (occurrence: JP)
  Receive Date: 20160606
  Receipt Date: 20160606
  Transmission Date: 20160815
  Serious: Yes (Hospitalization, Disabling)
  Sender: FDA-Public Use
  Company Number: JP-BAXALTA-2016BXJ003669

PATIENT
  Age: 62 Year
  Sex: Male
  Weight: 60 kg

DRUGS (4)
  1. BYCLOT [Suspect]
     Active Substance: COAGULATION FACTOR VII HUMAN\COAGULATION FACTOR X HUMAN
     Indication: PRODUCT USED FOR UNKNOWN INDICATION
     Dosage: 7.5 MG, 1X A DAY
     Route: 042
     Dates: start: 20160515, end: 20160516
  2. NOVOSEVEN [Suspect]
     Active Substance: COAGULATION FACTOR VIIA RECOMBINANT HUMAN
     Indication: PRODUCT USED FOR UNKNOWN INDICATION
     Dosage: 7 MG, 6X A DAY
     Route: 042
     Dates: start: 20160514, end: 20160517
  3. BYCLOT [Suspect]
     Active Substance: COAGULATION FACTOR VII HUMAN\COAGULATION FACTOR X HUMAN
     Dosage: 3 MG, 1X A DAY
     Route: 042
     Dates: start: 20160515, end: 20160516
  4. FEIBA [Suspect]
     Active Substance: ANTI-INHIBITOR COAGULANT COMPLEX
     Indication: HAEMOPHILIA A WITH ANTI FACTOR VIII
     Dosage: 4000 IU, 1X A DAY
     Route: 042
     Dates: start: 20160509, end: 20160509

REACTIONS (1)
  - Cerebral infarction [Unknown]
